FAERS Safety Report 16140924 (Version 1)
Quarter: 2019Q2

REPORT INFORMATION
  Report Type: Spontaneous
  Country: US (occurrence: US)
  Receive Date: 20190330
  Receipt Date: 20190330
  Transmission Date: 20190711
  Serious: Yes (Disabling, Other)
  Sender: FDA-Public Use
  Company Number: None

PATIENT
  Sex: Female
  Weight: 72.9 kg

DRUGS (6)
  1. BALANCED B-100 COMPLEX [Concomitant]
  2. MACROBID [Suspect]
     Active Substance: NITROFURANTOIN\NITROFURANTOIN MONOHYDRATE
  3. NITROFURANTOIN MONOMCR 100 MG [Suspect]
     Active Substance: NITROFURANTOIN\NITROFURANTOIN MONOHYDRATE
     Indication: CYSTITIS
     Dosage: ?          QUANTITY:14 CAPSULE(S);?
     Route: 048
     Dates: start: 20190321, end: 20190327
  4. CALCILUM 600+D3 [Concomitant]
  5. ASPIRIN. [Concomitant]
     Active Substance: ASPIRIN
  6. IBUPROFEN. [Concomitant]
     Active Substance: IBUPROFEN

REACTIONS (10)
  - Pain [None]
  - Cough [None]
  - Chills [None]
  - Pyrexia [None]
  - Adverse drug reaction [None]
  - Hypersensitivity [None]
  - Nausea [None]
  - Asthenia [None]
  - Diaphragmalgia [None]
  - Headache [None]

NARRATIVE: CASE EVENT DATE: 20190327
